FAERS Safety Report 15499266 (Version 1)
Quarter: 2018Q4

REPORT INFORMATION
  Report Type: Spontaneous
  Country: BR (occurrence: BR)
  Receive Date: 20181015
  Receipt Date: 20181015
  Transmission Date: 20190205
  Serious: Yes (Other)
  Sender: FDA-Public Use
  Company Number: BR-ELI_LILLY_AND_COMPANY-BR201610002232

PATIENT
  Sex: Female

DRUGS (3)
  1. HUMULIN N [Suspect]
     Active Substance: INSULIN HUMAN
     Indication: PRODUCT USED FOR UNKNOWN INDICATION
     Dosage: 12 IU, DAILY (EVERY AFTERNOON)
     Route: 058
  2. HUMULIN R [Suspect]
     Active Substance: INSULIN HUMAN
     Indication: PRODUCT USED FOR UNKNOWN INDICATION
     Dosage: 10 IU, BID
     Route: 058
  3. HUMULIN R [Suspect]
     Active Substance: INSULIN HUMAN
     Dosage: 5 IU, BID
     Route: 058

REACTIONS (10)
  - Injection site mass [Unknown]
  - Blood glucose increased [Not Recovered/Not Resolved]
  - Gastrointestinal carcinoma [Unknown]
  - Vision blurred [Unknown]
  - Hypoacusis [Unknown]
  - Malaise [Unknown]
  - Injury associated with device [Unknown]
  - Visual impairment [Not Recovered/Not Resolved]
  - Hyperglycaemia [Unknown]
  - Cataract [Unknown]
